FAERS Safety Report 20718726 (Version 11)
Quarter: 2024Q2

REPORT INFORMATION
  Report Type: Other
  Country: JP (occurrence: JP)
  Receive Date: 20220418
  Receipt Date: 20240430
  Transmission Date: 20240716
  Serious: Yes (Hospitalization, Other)
  Sender: FDA-Public Use
  Company Number: JP-CHUGAI-2022013239

PATIENT
  Age: 73 Year
  Sex: Male
  Weight: 52.4 kg

DRUGS (2)
  1. AVASTIN [Suspect]
     Active Substance: BEVACIZUMAB
     Indication: Hepatocellular carcinoma
     Dosage: 786 MILLIGRAM, SINGLE
     Route: 042
     Dates: start: 20210610, end: 20210610
  2. TECENTRIQ [Suspect]
     Active Substance: ATEZOLIZUMAB
     Indication: Hepatocellular carcinoma
     Dosage: UNK, SINGLE
     Route: 041
     Dates: start: 20210610, end: 20210610

REACTIONS (7)
  - Biliary obstruction [Recovering/Resolving]
  - Tumour haemorrhage [Recovered/Resolved]
  - Nausea [Unknown]
  - Vomiting [Unknown]
  - Hypertension [Unknown]
  - Haemobilia [Unknown]
  - Abdominal pain upper [Recovering/Resolving]

NARRATIVE: CASE EVENT DATE: 20210611
